FAERS Safety Report 5232366-7 (Version None)
Quarter: 2007Q1

REPORT INFORMATION
  Report Type: 
  Country: None (occurrence: None)
  Receive Date: 20070207
  Receipt Date: 20070124
  Transmission Date: 20070707
  Serious: Yes (Disabling, Other)
  Sender: FDA-Public Use
  Company Number: US-AMGEN-US196786

PATIENT
  Sex: Female

DRUGS (7)
  1. ENBREL [Suspect]
     Indication: RHEUMATOID ARTHRITIS
     Route: 058
     Dates: start: 20021105, end: 20040401
  2. HYDROCODONE [Concomitant]
  3. VOLTAREN [Concomitant]
     Route: 065
     Dates: start: 20031101
  4. ARAVA [Concomitant]
     Route: 065
     Dates: start: 20051101
  5. PREDNISONE [Concomitant]
     Route: 065
     Dates: start: 20051001
  6. LISINOPRIL [Concomitant]
  7. CLONIDINE [Concomitant]

REACTIONS (3)
  - BLINDNESS [None]
  - KERATITIS HERPETIC [None]
  - ULCERATIVE KERATITIS [None]
